FAERS Safety Report 8535573-0 (Version None)
Quarter: 2012Q2

REPORT INFORMATION
  Report Type: 
  Country: None (occurrence: None)
  Receive Date: 20120412
  Receipt Date: 20100304
  Transmission Date: 20120825
  Serious: Yes (Hospitalization)
  Sender: FDA-Public Use
  Company Number: PHEH2010US02904

PATIENT
  Sex: Male

DRUGS (1)
  1. CLOZARIL [Suspect]

REACTIONS (1)
  - SOMNOLENCE [None]
